FAERS Safety Report 7880807-9 (Version None)
Quarter: 2011Q4

REPORT INFORMATION
  Report Type: 
  Country: None (occurrence: None)
  Receive Date: 20111101
  Receipt Date: 20111020
  Transmission Date: 20120403
  Serious: Yes (Hospitalization)
  Sender: FDA-Public Use
  Company Number: US-BAXTER-2011BH031413

PATIENT
  Sex: Male

DRUGS (3)
  1. ARANESP [Concomitant]
     Indication: ANAEMIA
     Route: 065
  2. DIANEAL [Suspect]
     Indication: PERITONEAL DIALYSIS
     Route: 033
  3. EXTRANEAL [Suspect]
     Indication: PERITONEAL DIALYSIS
     Route: 033

REACTIONS (4)
  - FALL [None]
  - HAND FRACTURE [None]
  - DIZZINESS [None]
  - ANAEMIA [None]
